FAERS Safety Report 6749497-2 (Version None)
Quarter: 2010Q2

REPORT INFORMATION
  Report Type: 
  Country: None (occurrence: None)
  Receive Date: 20100527
  Receipt Date: 20100519
  Transmission Date: 20101027
  Serious: Yes (Hospitalization, Other)
  Sender: FDA-Public Use
  Company Number: 012182

PATIENT
  Sex: Male

DRUGS (3)
  1. KEPPRA [Suspect]
     Indication: EPILEPSY
     Dosage: (2500 MG ORAL)
     Route: 048
     Dates: start: 20091101, end: 20100401
  2. RIVOTRIL          (RIVOTRIL 2.5MG/ML ) (NOT SPECIFIED) [Suspect]
     Indication: EPILEPSY
     Dosage: (DAILY  40 DRPOS ORAL)
     Route: 048
     Dates: start: 20061101
  3. DI-HYDAN [Concomitant]

REACTIONS (4)
  - ABNORMAL BEHAVIOUR [None]
  - ENCEPHALOPATHY [None]
  - EPILEPSY [None]
  - RESTLESSNESS [None]
